FAERS Safety Report 13036073 (Version 1)
Quarter: 2016Q4

REPORT INFORMATION
  Report Type: Spontaneous
  Country: US (occurrence: US)
  Receive Date: 20161216
  Receipt Date: 20161216
  Transmission Date: 20170207
  Serious: No
  Sender: FDA-Public Use
  Company Number: US-PERRIGO-16US018656

PATIENT
  Age: 77 Year
  Sex: Male
  Weight: 90.7 kg

DRUGS (3)
  1. MUPIROCIN. [Suspect]
     Active Substance: MUPIROCIN
     Dosage: SMALL AMOUNT, BID
     Route: 045
     Dates: start: 2013, end: 2013
  2. MUPIROCIN. [Suspect]
     Active Substance: MUPIROCIN
     Dosage: STRIP OF PRODUCT MIXED WITH SALT 8 OUNCES OF WATER AND SALINE RINSE, QAM
     Route: 045
     Dates: start: 2013
  3. MUPIROCIN. [Suspect]
     Active Substance: MUPIROCIN
     Indication: SINUSITIS
     Dosage: SMALL AMOUNT, BID
     Route: 045
     Dates: start: 2012, end: 2012

REACTIONS (3)
  - Incorrect route of drug administration [Unknown]
  - Wrong technique in product usage process [Unknown]
  - Off label use [Unknown]

NARRATIVE: CASE EVENT DATE: 2012
